FAERS Safety Report 17399965 (Version 1)
Quarter: 2020Q1

REPORT INFORMATION
  Report Type: Spontaneous
  Country: US (occurrence: US)
  Receive Date: 20200211
  Receipt Date: 20200211
  Transmission Date: 20200409
  Serious: No
  Sender: FDA-Public Use
  Company Number: US-ASTRAZENECA-2020SE06962

PATIENT
  Age: 28087 Day
  Sex: Female
  Weight: 81.6 kg

DRUGS (1)
  1. FASLODEX [Suspect]
     Active Substance: FULVESTRANT
     Indication: BREAST CANCER
     Dosage: UNKNOWN
     Route: 030

REACTIONS (5)
  - Alopecia [Unknown]
  - Skin discolouration [Not Recovered/Not Resolved]
  - Erythema [Recovered/Resolved]
  - Injection site mass [Not Recovered/Not Resolved]
  - Onychoclasis [Unknown]

NARRATIVE: CASE EVENT DATE: 20180604
